FAERS Safety Report 13699915 (Version 2)
Quarter: 2017Q3

REPORT INFORMATION
  Report Type: Spontaneous
  Country: GB (occurrence: PL)
  Receive Date: 20170629
  Receipt Date: 20170718
  Transmission Date: 20171127
  Serious: Yes (Other)
  Sender: FDA-Public Use
  Company Number: PL-CONCORDIA PHARMACEUTICALS INC.-GSH201706-003839

PATIENT
  Age: 29 Year
  Sex: Female

DRUGS (1)
  1. PREDNISOLONE. [Suspect]
     Active Substance: PREDNISOLONE

REACTIONS (2)
  - Mediastinal mass [Unknown]
  - Drug ineffective [Unknown]
